FAERS Safety Report 22104089 (Version 1)
Quarter: 2023Q1

REPORT INFORMATION
  Report Type: Report from Study
  Country: US (occurrence: US)
  Receive Date: 20230316
  Receipt Date: 20230316
  Transmission Date: 20230418
  Serious: Yes (Other)
  Sender: FDA-Public Use
  Company Number: US-BAYER-2023A030176

PATIENT
  Age: 78 Year
  Sex: Male

DRUGS (2)
  1. STIVARGA [Suspect]
     Active Substance: REGORAFENIB
     Indication: Rectal cancer
     Dosage: 120 MG, QD (FOR 21 DAYS ON, 7 DAYS OFF)
     Dates: start: 20230215, end: 20230303
  2. LONSURF [Concomitant]
     Active Substance: TIPIRACIL HYDROCHLORIDE\TRIFLURIDINE
     Dosage: UNK

REACTIONS (6)
  - Hyperkeratosis [None]
  - Gait disturbance [None]
  - Balance disorder [None]
  - Trigger finger [None]
  - Fatigue [None]
  - Off label use [None]

NARRATIVE: CASE EVENT DATE: 20230201
